FAERS Safety Report 5742558-6 (Version None)
Quarter: 2008Q2

REPORT INFORMATION
  Report Type: 
  Country: None (occurrence: None)
  Receive Date: 20080515
  Receipt Date: 20080515
  Transmission Date: 20081010
  Serious: Yes (Other)
  Sender: FDA-Public Use
  Company Number: None

PATIENT
  Age: 30 Year
  Sex: Female
  Weight: 96.6162 kg

DRUGS (1)
  1. ESTROPIPATE [Suspect]
     Indication: MENOPAUSE
     Dosage: .3 MG DAILY PO
     Route: 048

REACTIONS (4)
  - DYSPNOEA [None]
  - HOT FLUSH [None]
  - MOOD SWINGS [None]
  - THERAPEUTIC RESPONSE UNEXPECTED WITH DRUG SUBSTITUTION [None]
